FAERS Safety Report 5965995-3 (Version None)
Quarter: 2008Q4

REPORT INFORMATION
  Report Type: 
  Country: None (occurrence: None)
  Receive Date: 20081121
  Receipt Date: 20081121
  Transmission Date: 20090506
  Serious: Yes (Other)
  Sender: FDA-Public Use
  Company Number: None

PATIENT
  Age: 50 Year
  Sex: Female
  Weight: 90.7194 kg

DRUGS (2)
  1. LIPITOR [Suspect]
     Indication: BLOOD CHOLESTEROL
     Dosage: 1 DAILY
     Dates: start: 20060105, end: 20061101
  2. ZETIA [Suspect]
     Indication: BLOOD CHOLESTEROL
     Dosage: 1 DAILY
     Dates: start: 20061201, end: 20070729

REACTIONS (1)
  - MYALGIA [None]
